FAERS Safety Report 4313082-2 (Version None)
Quarter: 2004Q1

REPORT INFORMATION
  Report Type: 
  Country: None (occurrence: None)
  Receive Date: 20040303
  Receipt Date: 19970610
  Transmission Date: 20041129
  Serious: Yes (Other)
  Sender: FDA-Public Use
  Company Number: US-JNJFOC-20031104503

PATIENT
  Age: 65 Year
  Sex: Male
  Weight: 86.637 kg

DRUGS (16)
  1. INFLIXIMAB (INFLIXIMAB, RECOMBINANT) LYOPHILIZED POWDER [Suspect]
     Indication: CROHN'S DISEASE
     Dosage: INTRAVENOUS
     Route: 042
     Dates: start: 19950815
  2. INFLIXIMAB (INFLIXIMAB, RECOMBINANT) LYOPHILIZED POWDER [Suspect]
     Indication: CROHN'S DISEASE
     Dosage: INTRAVENOUS
     Route: 042
     Dates: start: 19951107
  3. INFLIXIMAB (INFLIXIMAB, RECOMBINANT) LYOPHILIZED POWDER [Suspect]
     Indication: CROHN'S DISEASE
     Dosage: INTRAVENOUS
     Route: 042
     Dates: start: 19960109
  4. INFLIXIMAB (INFLIXIMAB, RECOMBINANT) LYOPHILIZED POWDER [Suspect]
     Indication: CROHN'S DISEASE
     Dosage: INTRAVENOUS
     Route: 042
     Dates: start: 19960306
  5. INFLIXIMAB (INFLIXIMAB, RECOMBINANT) LYOPHILIZED POWDER [Suspect]
     Indication: CROHN'S DISEASE
     Dosage: INTRAVENOUS
     Route: 042
     Dates: start: 19960430
  6. INFLIXIMAB (INFLIXIMAB, RECOMBINANT) LYOPHILIZED POWDER [Suspect]
  7. BETAGAN (LEVOBUNOLOL HYDROCHLORIDE) [Concomitant]
  8. FLAREX (FLUOROMETHOLONE ACETATE) [Concomitant]
  9. GENTAMICIN [Concomitant]
  10. PREDNISONE [Concomitant]
  11. FOLIC ACID [Concomitant]
  12. METRONIDAZOLE [Concomitant]
  13. SULFASALAZINE [Concomitant]
  14. CENTRUM (CENTRUM) [Concomitant]
  15. IMODIUM AD (LOPERAMIDE HYDROCHLORIDE) [Concomitant]
  16. VYTONE (VYTONE) [Concomitant]

REACTIONS (1)
  - PROSTATE CANCER [None]
